FAERS Safety Report 5475144-6 (Version None)
Quarter: 2007Q4

REPORT INFORMATION
  Report Type: 
  Country: None (occurrence: None)
  Receive Date: 20071002
  Receipt Date: 20070926
  Transmission Date: 20080405
  Serious: Yes (Other)
  Sender: FDA-Public Use
  Company Number: US-PFIZER INC-2007042925

PATIENT
  Sex: Male
  Weight: 117.9 kg

DRUGS (11)
  1. VIAGRA [Suspect]
  2. ATROVENT [Concomitant]
  3. ALBUTEROL [Concomitant]
  4. PREDNISONE [Concomitant]
  5. XANAX [Concomitant]
  6. PRILOSEC [Concomitant]
  7. PROPULSID [Concomitant]
  8. NITROGLYCERIN [Concomitant]
  9. ZOCOR [Concomitant]
  10. IMDUR [Concomitant]
  11. ASPIRIN [Concomitant]

REACTIONS (2)
  - BLINDNESS [None]
  - OPTIC ISCHAEMIC NEUROPATHY [None]
